FAERS Safety Report 19561662 (Version 1)
Quarter: 2021Q3

REPORT INFORMATION
  Report Type: Spontaneous
  Country: US (occurrence: US)
  Receive Date: 20210716
  Receipt Date: 20210716
  Transmission Date: 20211014
  Serious: Yes (Other)
  Sender: FDA-Public Use
  Company Number: None

PATIENT
  Age: 56 Year
  Sex: Female
  Weight: 95.31 kg

DRUGS (18)
  1. MINERAL OILLS [Concomitant]
  2. PREMARIN VAGINAL [Concomitant]
     Active Substance: ESTROGENS, CONJUGATED
  3. ZINC GLUCONATE/PICOLINATE [Concomitant]
  4. VITAMIN [Concomitant]
     Active Substance: VITAMINS
  5. CALCIUM [Concomitant]
     Active Substance: CALCIUM
  6. POTASSIUM [Concomitant]
     Active Substance: POTASSIUM
  7. GENERIC ABILIFY [Concomitant]
     Active Substance: ARIPIPRAZOLE
  8. ANASTRAZOLE [Concomitant]
     Active Substance: ANASTROZOLE
  9. C [Concomitant]
  10. OLANZAPINE. [Suspect]
     Active Substance: OLANZAPINE
     Indication: SCHIZOPHRENIA
     Dosage: ?          QUANTITY:2 TABLET(S);?
     Route: 048
  11. CPAP [Concomitant]
     Active Substance: DEVICE
  12. B6 [Concomitant]
     Active Substance: PYRIDOXINE HYDROCHLORIDE
  13. L?LYSINE [Concomitant]
     Active Substance: LYSINE
  14. P?5?P [Concomitant]
  15. CHROMIUM PICOLINATE [Concomitant]
     Active Substance: CHROMIUM PICOLINATE
  16. C [Concomitant]
  17. VITAMIN D3 [Concomitant]
     Active Substance: CHOLECALCIFEROL
  18. E [Concomitant]

REACTIONS (2)
  - Burning sensation [None]
  - Muscle spasms [None]

NARRATIVE: CASE EVENT DATE: 20181231
